FAERS Safety Report 8602357-4 (Version None)
Quarter: 2012Q3

REPORT INFORMATION
  Report Type: 
  Country: None (occurrence: None)
  Receive Date: 20120817
  Receipt Date: 20110214
  Transmission Date: 20120928
  Serious: Yes (Other)
  Sender: FDA-Public Use
  Company Number: CO-PFIZER INC-2012199851

PATIENT
  Age: 75 Year
  Sex: Female

DRUGS (7)
  1. METOPROLOL [Concomitant]
     Dosage: 100 MG, 2X/DAY
  2. LOSARTAN [Concomitant]
     Dosage: 50 MG, EVERY 12 HOURS
  3. GLIBENCLAMIDE [Concomitant]
     Dosage: 5 MG, 1X/DAY
  4. METFORMIN [Concomitant]
     Dosage: 850 MG, 4X/DAY
  5. AMLODIPINE [Concomitant]
     Dosage: 5 MG, 2X/DAY
  6. HYDROCHLOROTHIAZIDE [Concomitant]
     Dosage: 25 MG, 1X/DAY
  7. LIPITOR [Suspect]
     Dosage: 20 MG, EVERY 24 HOURS

REACTIONS (3)
  - INSOMNIA [None]
  - OEDEMA PERIPHERAL [None]
  - OLIGURIA [None]
